FAERS Safety Report 10679120 (Version 2)
Quarter: 2014Q4

REPORT INFORMATION
  Report Type: Spontaneous
  Country: US (occurrence: US)
  Receive Date: 20141229
  Receipt Date: 20141229
  Transmission Date: 20150529
  Serious: No
  Sender: FDA-Public Use
  Company Number: US-BAUSCH-SYM-2014-21419

PATIENT
  Age: 63 Year
  Sex: Male
  Weight: 87.17 kg

DRUGS (3)
  1. XENAZINE [Suspect]
     Active Substance: TETRABENAZINE
     Dosage: HALF TABLET, ONCE DAILY
     Route: 048
  2. XENAZINE [Suspect]
     Active Substance: TETRABENAZINE
     Indication: TARDIVE DYSKINESIA
     Dosage: 3 TABLETS, ONCE DAILY
     Route: 048
     Dates: start: 20131219
  3. XENAZINE [Suspect]
     Active Substance: TETRABENAZINE
     Dosage: 1 TABLET, ONCE DAILY
     Route: 048

REACTIONS (8)
  - Choking sensation [Recovering/Resolving]
  - Condition aggravated [Unknown]
  - Movement disorder [Unknown]
  - Ear pain [Unknown]
  - Pain in jaw [Unknown]
  - Intentional product use issue [Not Recovered/Not Resolved]
  - Musculoskeletal stiffness [Recovering/Resolving]
  - Weight decreased [Unknown]

NARRATIVE: CASE EVENT DATE: 20131219
